FAERS Safety Report 6996510-3 (Version None)
Quarter: 2010Q3

REPORT INFORMATION
  Report Type: 
  Country: None (occurrence: None)
  Receive Date: 20100918
  Receipt Date: 20090401
  Transmission Date: 20110219
  Serious: No
  Sender: FDA-Public Use
  Company Number: US-WYE-H08811509

PATIENT
  Age: 55 Year
  Sex: Female
  Weight: 63.56 kg

DRUGS (3)
  1. ADVIL COLD AND SINUS [Suspect]
     Indication: SINUS HEADACHE
     Dosage: 1 LIQUI-GEL AS NEEDED
     Route: 048
     Dates: start: 19990101
  2. ADVIL COLD AND SINUS [Suspect]
     Indication: NASAL CONGESTION
  3. ZOLOFT [Concomitant]

REACTIONS (2)
  - EYELID OEDEMA [None]
  - LIP SWELLING [None]
